FAERS Safety Report 8555358-9 (Version None)
Quarter: 2012Q3

REPORT INFORMATION
  Report Type: 
  Country: None (occurrence: None)
  Receive Date: 20120731
  Receipt Date: 20110816
  Transmission Date: 20120928
  Serious: No
  Sender: FDA-Public Use
  Company Number: US-ASTRAZENECA-2011SE29498

PATIENT
  Age: 48 Year
  Sex: Female
  Weight: 61.2 kg

DRUGS (5)
  1. LANTUS [Suspect]
     Route: 065
  2. SEROQUEL [Suspect]
     Indication: BIPOLAR DISORDER
     Route: 048
  3. TRAMADOL HYDROCHLORIDE [Suspect]
     Route: 065
  4. PERCOCET [Concomitant]
  5. HUMALOG [Suspect]
     Route: 065

REACTIONS (6)
  - CROHN'S DISEASE [None]
  - BLADDER DISCOMFORT [None]
  - DEPRESSION [None]
  - RENAL COLIC [None]
  - DRUG DOSE OMISSION [None]
  - HYPERGLYCAEMIA [None]
